FAERS Safety Report 6009911-7 (Version None)
Quarter: 2008Q4

REPORT INFORMATION
  Report Type: 
  Country: None (occurrence: None)
  Receive Date: 20081217
  Receipt Date: 20081217
  Transmission Date: 20090506
  Serious: No
  Sender: FDA-Public Use
  Company Number: None

PATIENT
  Age: 41 Year
  Sex: Female

DRUGS (1)
  1. FERRIC NA GLUCONATE [Suspect]
     Dosage: 250 MG ONCE IV
     Route: 042
     Dates: start: 20081205

REACTIONS (7)
  - ABDOMINAL PAIN [None]
  - HEADACHE [None]
  - LOSS OF CONSCIOUSNESS [None]
  - OEDEMA PERIPHERAL [None]
  - PAIN IN EXTREMITY [None]
  - SYNCOPE [None]
  - VOMITING [None]
